FAERS Safety Report 8785165 (Version 1)
Quarter: 2012Q4

REPORT INFORMATION
  Report Type: 
  Country: US (occurrence: US)
  Receive Date: 20120914
  Receipt Date: 20120914
  Transmission Date: 20130627
  Serious: Yes (Hospitalization, Disabling, Other)
  Sender: FDA-Public Use
  Company Number: US-009507513-1201USA00344

PATIENT

DRUGS (2)
  1. FOSAMAX [Suspect]
     Indication: OSTEOPOROSIS
     Dosage: 70 mg
     Route: 048
     Dates: start: 200209, end: 20070814
  2. FOSAMAX PLUS D [Suspect]
     Indication: OSTEOPENIA
     Dosage: 70/2800
     Route: 048
     Dates: start: 20070815, end: 20100121

REACTIONS (17)
  - Gallbladder disorder [Unknown]
  - Femur fracture [Recovered/Resolved]
  - Tooth disorder [Unknown]
  - Hypertension [Not Recovered/Not Resolved]
  - Blood cholesterol increased [Not Recovered/Not Resolved]
  - Type 2 diabetes mellitus [Not Recovered/Not Resolved]
  - Toothache [Unknown]
  - Calculus ureteric [Recovered/Resolved]
  - Hydronephrosis [Unknown]
  - Hydroureter [Unknown]
  - Abdominal hernia [Unknown]
  - Uterine leiomyoma [Unknown]
  - Glaucoma [Unknown]
  - Breast disorder [Recovered/Resolved]
  - Lipoma [Recovered/Resolved]
  - Arthralgia [Unknown]
  - Arthralgia [Unknown]
